FAERS Safety Report 7378135-3 (Version None)
Quarter: 2011Q1

REPORT INFORMATION
  Report Type: 
  Country: None (occurrence: None)
  Receive Date: 20110317
  Receipt Date: 20110307
  Transmission Date: 20110831
  Serious: Yes (Hospitalization)
  Sender: FDA-Public Use
  Company Number: UTC-005591

PATIENT
  Age: 55 Year
  Sex: Female
  Weight: 68.18 kg

DRUGS (3)
  1. LETAIRIS [Concomitant]
  2. TYVASO [Suspect]
     Indication: COR PULMONALE CHRONIC
     Dosage: 264 MCG (66 MCG, 4 IN 1 D), INHALATION
     Route: 055
     Dates: start: 20110223
  3. DIURETICS (DIURETICS) [Concomitant]

REACTIONS (6)
  - RALES [None]
  - DYSPNOEA [None]
  - TACHYCARDIA [None]
  - FATIGUE [None]
  - COUGH [None]
  - OROPHARYNGEAL PAIN [None]
